FAERS Safety Report 8424262-9 (Version None)
Quarter: 2012Q2

REPORT INFORMATION
  Report Type: 
  Country: None (occurrence: None)
  Receive Date: 20120608
  Receipt Date: 20111017
  Transmission Date: 20120825
  Serious: No
  Sender: FDA-Public Use
  Company Number: US-ASTRAZENECA-2011SE61575

PATIENT
  Age: 82 Year
  Sex: Female

DRUGS (2)
  1. NEXIUM [Suspect]
     Route: 048
  2. PULMICORT FLEXHALER [Suspect]
     Dosage: 180 MCG DAILY
     Route: 055

REACTIONS (7)
  - FATIGUE [None]
  - DYSPHAGIA [None]
  - HEARING IMPAIRED [None]
  - CHOKING [None]
  - ASTHMA [None]
  - GASTROOESOPHAGEAL REFLUX DISEASE [None]
  - DRUG DOSE OMISSION [None]
